FAERS Safety Report 9627546 (Version 2)
Quarter: 2013Q4

REPORT INFORMATION
  Report Type: Not Available
  Country: US (occurrence: US)
  Receive Date: 20131016
  Receipt Date: 20131016
  Transmission Date: 20140711
  Serious: Yes (Other)
  Sender: FDA-Public Use
  Company Number: US-LUNDBECK-DKLU1089454

PATIENT
  Sex: Male
  Weight: 12 kg

DRUGS (9)
  1. SABRIL (FOR ORAL SOLUTION) [Suspect]
     Indication: INFANTILE SPASMS
     Route: 048
     Dates: start: 20130204, end: 20130304
  2. SABRIL (FOR ORAL SOLUTION) [Suspect]
     Dates: start: 20130204
  3. SABRIL (FOR ORAL SOLUTION) [Suspect]
     Dates: start: 20130208
  4. SABRIL (FOR ORAL SOLUTION) [Suspect]
     Dates: start: 20130213
  5. SABRIL (FOR ORAL SOLUTION) [Suspect]
  6. SABRIL (FOR ORAL SOLUTION) [Suspect]
     Dates: start: 20130304, end: 20130307
  7. PREDNISOLONE [Concomitant]
     Indication: PRODUCT USED FOR UNKNOWN INDICATION
  8. STEROID [Concomitant]
     Indication: PRODUCT USED FOR UNKNOWN INDICATION
  9. RANITIDINE [Concomitant]
     Indication: PROPHYLAXIS AGAINST GASTROINTESTINAL ULCER

REACTIONS (3)
  - Infantile spasms [Unknown]
  - Nuclear magnetic resonance imaging brain abnormal [Unknown]
  - Drug ineffective [Unknown]
